FAERS Safety Report 23485239 (Version 1)
Quarter: 2024Q1

REPORT INFORMATION
  Report Type: Spontaneous
  Country: US (occurrence: US)
  Receive Date: 20240206
  Receipt Date: 20240206
  Transmission Date: 20240410
  Serious: No
  Sender: FDA-Public Use
  Company Number: US-SA-SAC20240129000270

PATIENT
  Age: 20 Year
  Sex: Female

DRUGS (1)
  1. DUPIXENT [Suspect]
     Active Substance: DUPILUMAB
     Indication: Asthma
     Dosage: 1X 300MG IN EACH THIGH
     Route: 058
     Dates: start: 20240124, end: 20240124

REACTIONS (5)
  - Chest discomfort [Unknown]
  - Pain in extremity [Unknown]
  - Tremor [Unknown]
  - Brain fog [Unknown]
  - Heart rate irregular [Unknown]

NARRATIVE: CASE EVENT DATE: 20240124
